FAERS Safety Report 17030934 (Version 1)
Quarter: 2019Q4

REPORT INFORMATION
  Report Type: Spontaneous
  Country: PE (occurrence: PE)
  Receive Date: 20191113
  Receipt Date: 20191113
  Transmission Date: 20200122
  Serious: Yes (Disabling)
  Sender: FDA-Public Use
  Company Number: None

PATIENT
  Age: 54 Year
  Sex: Male
  Weight: 75 kg

DRUGS (2)
  1. PRIKUL PREGABALINA [Suspect]
     Active Substance: PREGABALIN
     Indication: NERVE INJURY
     Dosage: ?          QUANTITY:1 CAPSULE(S);?
     Route: 048
  2. TATIFRAM PARACETAMOL/TRAMADOL [Concomitant]

REACTIONS (14)
  - Anxiety [None]
  - Fall [None]
  - Asthenia [None]
  - Dry mouth [None]
  - Mania [None]
  - Dizziness [None]
  - Nightmare [None]
  - Depression [None]
  - Hallucination [None]
  - Suicidal ideation [None]
  - Nausea [None]
  - Panic attack [None]
  - Migraine [None]
  - Loss of personal independence in daily activities [None]

NARRATIVE: CASE EVENT DATE: 20191112
